FAERS Safety Report 16708150 (Version 4)
Quarter: 2019Q4

REPORT INFORMATION
  Report Type: Report from Study
  Country: US (occurrence: US)
  Receive Date: 20190815
  Receipt Date: 20191203
  Transmission Date: 20200122
  Serious: Yes (Hospitalization)
  Sender: FDA-Public Use
  Company Number: US-ALEXION PHARMACEUTICALS INC.-A201912039

PATIENT
  Sex: Female

DRUGS (2)
  1. STRENSIQ [Suspect]
     Active Substance: ASFOTASE ALFA
     Dosage: UNK, TIW
     Route: 058
  2. STRENSIQ [Suspect]
     Active Substance: ASFOTASE ALFA
     Indication: HYPOPHOSPHATASIA
     Dosage: UNK
     Route: 065
     Dates: start: 201708

REACTIONS (8)
  - Foot fracture [Not Recovered/Not Resolved]
  - Fall [Unknown]
  - Hypersensitivity [Unknown]
  - Arthralgia [Unknown]
  - Impaired healing [Unknown]
  - Erythema [Unknown]
  - Injection site erythema [Unknown]
  - Limb discomfort [Unknown]

NARRATIVE: CASE EVENT DATE: 201708
